FAERS Safety Report 8230625-7 (Version None)
Quarter: 2012Q1

REPORT INFORMATION
  Report Type: 
  Country: None (occurrence: None)
  Receive Date: 20120320
  Receipt Date: 20120307
  Transmission Date: 20120608
  Serious: Yes (Hospitalization)
  Sender: FDA-Public Use
  Company Number: DSJ-2012-04635

PATIENT
  Age: 5 Decade
  Sex: Male

DRUGS (2)
  1. AMLODIPINE BESYLATE AND OLMESARTAN MEDOXOMIL [Suspect]
     Indication: HYPERTENSION
     Dosage: 40/10; 40/5  MG (1 IN 1 D), PER ORAL
     Route: 048
     Dates: end: 20100501
  2. AMLODIPINE BESYLATE AND OLMESARTAN MEDOXOMIL [Suspect]
     Indication: HYPERTENSION
     Dosage: 40/10; 40/5  MG (1 IN 1 D), PER ORAL
     Route: 048
     Dates: start: 20100501

REACTIONS (1)
  - PROSTATIC OPERATION [None]
